FAERS Safety Report 10136317 (Version 1)
Quarter: 2014Q2

REPORT INFORMATION
  Report Type: Spontaneous
  Country: US (occurrence: None)
  Receive Date: 20140422
  Receipt Date: 20140422
  Transmission Date: 20141212
  Serious: Yes (Other)
  Sender: FDA-Public Use
  Company Number: 3

PATIENT
  Age: 87 Year
  Sex: Male

DRUGS (1)
  1. AVASTIN [Suspect]
     Indication: VITREOUS HAEMORRHAGE
     Route: 031
     Dates: start: 20140204

REACTIONS (4)
  - Vision blurred [None]
  - Eye pain [None]
  - Iritis [None]
  - Inflammation [None]
